APPROVED DRUG PRODUCT: MOMETASONE FUROATE
Active Ingredient: MOMETASONE FUROATE
Strength: 0.05MG/SPRAY
Dosage Form/Route: SPRAY, METERED;NASAL
Application: A207989 | Product #001 | TE Code: AB
Applicant: AMNEAL PHARMACEUTICALS
Approved: Apr 3, 2017 | RLD: No | RS: No | Type: RX